FAERS Safety Report 12725106 (Version 1)
Quarter: 2016Q3

REPORT INFORMATION
  Report Type: Spontaneous
  Country: US (occurrence: US)
  Receive Date: 20160908
  Receipt Date: 20160908
  Transmission Date: 20161109
  Serious: Yes (Life-Threatening, Hospitalization, Other)
  Sender: FDA-Public Use
  Company Number: US-JNJFOC-20160709347

PATIENT
  Sex: Female

DRUGS (3)
  1. HUMIRA [Concomitant]
     Active Substance: ADALIMUMAB
     Indication: DRUG INEFFECTIVE
     Route: 065
  2. ENBREL [Concomitant]
     Active Substance: ETANERCEPT
     Indication: THERAPEUTIC RESPONSE DECREASED
     Route: 065
     Dates: start: 2008
  3. REMICADE [Suspect]
     Active Substance: INFLIXIMAB
     Indication: OXYGEN SATURATION ABNORMAL
     Route: 042

REACTIONS (7)
  - Product use issue [Unknown]
  - Photopsia [Recovered/Resolved]
  - Drug hypersensitivity [Unknown]
  - Shock [Recovered/Resolved]
  - Respiratory arrest [Recovered/Resolved]
  - Drug intolerance [Recovered/Resolved]
  - Off label use [Unknown]

NARRATIVE: CASE EVENT DATE: 2008
